FAERS Safety Report 21455533 (Version 1)
Quarter: 2022Q4

REPORT INFORMATION
  Report Type: Spontaneous
  Country: ES (occurrence: ES)
  Receive Date: 20221014
  Receipt Date: 20221014
  Transmission Date: 20230112
  Serious: Yes (Hospitalization)
  Sender: FDA-Public Use
  Company Number: ES-SUN PHARMACEUTICAL INDUSTRIES LTD-2022RR-357756

PATIENT
  Age: 88 Year
  Sex: Female

DRUGS (4)
  1. SERTRALINE [Interacting]
     Active Substance: SERTRALINE HYDROCHLORIDE
     Indication: Major depression
     Dosage: 100 MILLIGRAM, DAILY
     Route: 048
     Dates: start: 2020, end: 20220721
  2. TRAZODONE HYDROCHLORIDE [Interacting]
     Active Substance: TRAZODONE HYDROCHLORIDE
     Indication: Major depression
     Dosage: 100 MILLIGRAM, DAILY
     Route: 048
     Dates: start: 20220721, end: 20220727
  3. EUTIROX 25 microgramos [Concomitant]
     Indication: Hypothyroidism
     Dosage: 25 MICROGRAM, DAILY
     Route: 048
  4. PREDNISONE [Concomitant]
     Active Substance: PREDNISONE
     Indication: Eosinophilic pneumonia
     Dosage: 50 MILLIGRAM, DAILY
     Route: 048
     Dates: start: 20220715, end: 20220727

REACTIONS (1)
  - Confusional state [Recovered/Resolved]

NARRATIVE: CASE EVENT DATE: 20220727
